FAERS Safety Report 5923335-X (Version None)
Quarter: 2008Q4

REPORT INFORMATION
  Report Type: 
  Country: None (occurrence: None)
  Receive Date: 20081020
  Receipt Date: 20081013
  Transmission Date: 20090506
  Serious: Yes (Death, Hospitalization)
  Sender: FDA-Public Use
  Company Number: FR-AVENTIS-200813650FR

PATIENT
  Age: 82 Year
  Sex: Female

DRUGS (2)
  1. LOVENOX [Suspect]
     Route: 058
     Dates: start: 20080930, end: 20081006
  2. KARDEGIC                           /00002703/ [Concomitant]
     Indication: DRUG USE FOR UNKNOWN INDICATION
     Route: 048

REACTIONS (3)
  - COMA [None]
  - DEATH [None]
  - GASTROINTESTINAL HAEMORRHAGE [None]
